FAERS Safety Report 4360913-6 (Version None)
Quarter: 2004Q2

REPORT INFORMATION
  Report Type: 
  Country: None (occurrence: None)
  Receive Date: 20040517
  Receipt Date: 20040503
  Transmission Date: 20050107
  Serious: Yes (Other)
  Sender: FDA-Public Use
  Company Number: FR-JNJFOC-20040300283

PATIENT
  Age: 47 Year
  Sex: Female
  Weight: 49 kg

DRUGS (4)
  1. SPORANOX [Suspect]
     Indication: PNEUMONIA ASPERGILLUS
     Dosage: SEE IMAGE ORAL
     Route: 048
     Dates: start: 20030901, end: 20040301
  2. SPORANOX [Suspect]
     Indication: PNEUMONIA ASPERGILLUS
     Dosage: SEE IMAGE ORAL
     Route: 048
     Dates: start: 20020601
  3. FLIXOTIDE (FLUTICASONE) [Concomitant]
  4. LEXOMIL (BROMAZEPAM) [Concomitant]

REACTIONS (4)
  - ADRENAL INSUFFICIENCY [None]
  - CUSHING'S SYNDROME [None]
  - FACE OEDEMA [None]
  - OEDEMA PERIPHERAL [None]
